FAERS Safety Report 10617019 (Version 4)
Quarter: 2015Q3

REPORT INFORMATION
  Report Type: Spontaneous
  Country: US (occurrence: US)
  Receive Date: 20141201
  Receipt Date: 20150710
  Transmission Date: 20151125
  Serious: No
  Sender: FDA-Public Use
  Company Number: US-ELI_LILLY_AND_COMPANY-US201412000162

PATIENT
  Sex: Female

DRUGS (6)
  1. PROZAC [Suspect]
     Active Substance: FLUOXETINE HYDROCHLORIDE
     Indication: PRODUCT USED FOR UNKNOWN INDICATION
     Dosage: 10 MG, UNKNOWN
     Route: 065
     Dates: start: 20050110
  2. AMPICILLIN [Concomitant]
     Active Substance: AMPICILLIN
  3. TYLENOL [Concomitant]
     Active Substance: ACETAMINOPHEN
  4. PITOCIN [Concomitant]
     Active Substance: OXYTOCIN
  5. STADOL [Concomitant]
     Active Substance: BUTORPHANOL TARTRATE
  6. PHENERGAN [Concomitant]
     Active Substance: PROMETHAZINE HYDROCHLORIDE

REACTIONS (3)
  - Exposure during pregnancy [Recovered/Resolved]
  - Exposure during breast feeding [Recovered/Resolved]
  - Amniotic cavity infection [Unknown]
